FAERS Safety Report 12538187 (Version 1)
Quarter: 2016Q3

REPORT INFORMATION
  Report Type: Spontaneous
  Country: US (occurrence: US)
  Receive Date: 20160707
  Receipt Date: 20160707
  Transmission Date: 20161109
  Serious: No
  Sender: FDA-Public Use
  Company Number: US-ACTELION-A-NJ2015-111958

PATIENT
  Age: 40 Year
  Sex: Female
  Weight: 147.39 kg

DRUGS (4)
  1. TYVASO [Suspect]
     Active Substance: TREPROSTINIL
     Indication: PULMONARY HYPERTENSION
     Dosage: 54 MCG, QID
     Route: 055
     Dates: start: 20141105, end: 201501
  2. REMODULIN [Suspect]
     Active Substance: TREPROSTINIL
     Indication: PULMONARY HYPERTENSION
     Dosage: 0.009 ?G/KG, PER MIN
     Route: 042
     Dates: start: 20150126
  3. RIOCIGUAT [Concomitant]
     Active Substance: RIOCIGUAT
  4. VELETRI [Suspect]
     Active Substance: EPOPROSTENOL
     Indication: PULMONARY ARTERIAL HYPERTENSION
     Dosage: UNK
     Route: 042
     Dates: start: 201501, end: 201501

REACTIONS (6)
  - Upper respiratory tract infection [Unknown]
  - Device issue [Unknown]
  - Headache [Unknown]
  - Nausea [Unknown]
  - Pain in jaw [Unknown]
  - Catheter site scab [Unknown]

NARRATIVE: CASE EVENT DATE: 201501
